FAERS Safety Report 5371459-0 (Version None)
Quarter: 2007Q2

REPORT INFORMATION
  Report Type: 
  Country: None (occurrence: None)
  Receive Date: 20070622
  Receipt Date: 20070614
  Transmission Date: 20071010
  Serious: Yes (Hospitalization, Other)
  Sender: FDA-Public Use
  Company Number: 234889K07USA

PATIENT
  Age: 1 Day
  Sex: Male
  Weight: 2.429 kg

DRUGS (3)
  1. REBIF [Suspect]
     Indication: MULTIPLE SCLEROSIS
     Dosage: 44 MCG, 3 IN 1 WEEKS, SUBCUTANEOUS
     Route: 058
     Dates: start: 20050622, end: 20050801
  2. ZOMIG [Suspect]
     Dosage: 2.5 MG, AS REQUIRED, ORAL
     Route: 048
     Dates: end: 20050801
  3. MOTRIN [Suspect]
     Dosage: 800 MG, AS REQUIRED, ORAL
     Route: 048
     Dates: start: 20050601, end: 20050801

REACTIONS (6)
  - ASTHMA [None]
  - CONGENITAL NYSTAGMUS [None]
  - DRUG EXPOSURE DURING PREGNANCY [None]
  - DYSPHAGIA [None]
  - JAUNDICE NEONATAL [None]
  - NEONATAL ASPIRATION [None]
